FAERS Safety Report 7739570-4 (Version None)
Quarter: 2011Q3

REPORT INFORMATION
  Report Type: 
  Country: None (occurrence: None)
  Receive Date: 20110909
  Receipt Date: 20110829
  Transmission Date: 20111222
  Serious: Yes (Hospitalization, Other)
  Sender: FDA-Public Use
  Company Number: AU-ELI_LILLY_AND_COMPANY-AU201107007784

PATIENT
  Sex: Female
  Weight: 74 kg

DRUGS (22)
  1. DURAGESIC-100 [Concomitant]
     Indication: ANALGESIC THERAPY
  2. ONDANSETRON [Concomitant]
     Indication: PROPHYLAXIS
     Dosage: UNK
     Route: 042
     Dates: start: 20110727
  3. ORDINE [Concomitant]
     Indication: BREAKTHROUGH PAIN
     Dosage: UNK
     Route: 048
     Dates: start: 20110101
  4. PACLITAXEL [Suspect]
     Indication: PANCREATIC CARCINOMA METASTATIC
     Dosage: 125 MG/M2, OTHER (DAY ONE, EIGHT AND 15 EVERY 4 WEEKS)
     Route: 042
     Dates: start: 20110707
  5. PANTOPRAZOLE [Concomitant]
     Indication: GASTRITIS
     Dosage: UNK
     Route: 048
     Dates: start: 20110608
  6. MAXOLON [Concomitant]
     Indication: NAUSEA
     Dosage: UNK
     Route: 048
     Dates: start: 20110602
  7. LORAZEPAM [Concomitant]
     Indication: ANXIETY
  8. AUGMENTIN '125' [Concomitant]
     Indication: PRODUCTIVE COUGH
  9. LOPERAMIDE HCL [Concomitant]
     Indication: DIARRHOEA
  10. NITROGLYCERIN [Concomitant]
     Indication: CHEST PAIN
     Dosage: UNK
     Route: 060
     Dates: start: 20110810, end: 20110810
  11. DEXAMETHASONE [Concomitant]
     Indication: PROPHYLAXIS
     Dosage: UNK
     Route: 042
     Dates: start: 20110707, end: 20110727
  12. OSTELIN [Concomitant]
     Indication: HYPOVITAMINOSIS
     Dosage: UNK
     Route: 048
     Dates: start: 20110701
  13. ACETAMINOPHEN [Concomitant]
     Indication: ANALGESIC THERAPY
     Dosage: UNK
     Route: 048
     Dates: start: 20110602
  14. MYLANTA [Concomitant]
     Indication: GASTROOESOPHAGEAL REFLUX DISEASE
     Dosage: UNK
     Route: 048
     Dates: start: 20110627, end: 20110720
  15. VALPROATE SODIUM [Concomitant]
     Indication: DEPRESSION
     Dosage: UNK
     Route: 048
     Dates: start: 20070101
  16. KEFLEX [Concomitant]
     Indication: PRODUCTIVE COUGH
  17. NIZATIDINE [Concomitant]
     Indication: NAUSEA
     Dosage: UNK
     Route: 048
     Dates: start: 20110701
  18. RED BLOOD CELLS, CONCENTRATED [Concomitant]
     Indication: ANAEMIA
  19. LEXOTAN [Concomitant]
     Indication: ANXIETY
  20. GEMCITABINE HYDROCHLORIDE [Suspect]
     Indication: PANCREATIC CARCINOMA METASTATIC
     Dosage: 1000 MG/M2, OTHER (DAY ONE, EIGHT AND 15 EVERY 4 WEEKS)
     Route: 042
     Dates: start: 20110707
  21. ZOLOFT [Concomitant]
     Indication: DEPRESSION
     Dosage: UNK
     Dates: start: 20070101
  22. MOTILIUM [Concomitant]
     Indication: NAUSEA
     Dosage: UNK
     Route: 048
     Dates: start: 20110621

REACTIONS (3)
  - PYREXIA [None]
  - VOMITING [None]
  - INFERIOR VENA CAVAL OCCLUSION [None]
